FAERS Safety Report 11520366 (Version 1)
Quarter: 2015Q3

REPORT INFORMATION
  Report Type: Spontaneous
  Country: US (occurrence: US)
  Receive Date: 20150918
  Receipt Date: 20150918
  Transmission Date: 20151125
  Serious: No
  Sender: FDA-Public Use
  Company Number: US-RB-076314-15

PATIENT

DRUGS (2)
  1. ROBITUSSIN (GUAIFENESIN) [Concomitant]
     Active Substance: GUAIFENESIN
     Indication: PRODUCT USED FOR UNKNOWN INDICATION
     Dosage: DOSE UNK, UNITS UNK, FREQUENCY UNK
     Route: 065
  2. MUCINEX MAXIMUM STRENGTH [Suspect]
     Active Substance: GUAIFENESIN
     Indication: PRODUCT USED FOR UNKNOWN INDICATION
     Dosage: 1200MG. PRODUCT LAST USED ON 19/MAR/2015 AT 06:00 PM; AMOUNT USED: 7,BID
     Route: 065
     Dates: start: 20150316

REACTIONS (2)
  - Condition aggravated [Recovered/Resolved]
  - Nausea [Recovered/Resolved]
